FAERS Safety Report 9154359 (Version 1)
Quarter: 2013Q1

REPORT INFORMATION
  Report Type: Spontaneous
  Country: US (occurrence: US)
  Receive Date: 20130311
  Receipt Date: 20130311
  Transmission Date: 20140127
  Serious: Yes (Hospitalization)
  Sender: FDA-Public Use
  Company Number: US-ELI_LILLY_AND_COMPANY-US201302009905

PATIENT
  Age: 79 Year
  Sex: Female
  Weight: 42.63 kg

DRUGS (16)
  1. EFFIENT [Suspect]
     Indication: STENT PLACEMENT
     Dosage: 5 MG, UNK
     Dates: start: 20111128
  2. TYLENOL /00020001/ [Concomitant]
  3. ALBUTEROL [Concomitant]
  4. COMBIVENT [Concomitant]
  5. XANAX [Concomitant]
  6. ASA [Concomitant]
     Dosage: 81 DF, UNK
  7. COENZYM Q10 [Concomitant]
  8. NEXIUM [Concomitant]
  9. FLAXSEED OIL [Concomitant]
  10. NORCO [Concomitant]
  11. IRON [Concomitant]
  12. ANTIVERT                           /00007101/ [Concomitant]
  13. TOPROL [Concomitant]
  14. NITRODUR [Concomitant]
  15. OMEGA 3 [Concomitant]
  16. MULTIVITAMIN [Concomitant]

REACTIONS (1)
  - Coronary artery restenosis [Unknown]
